FAERS Safety Report 7179453-4 (Version None)
Quarter: 2010Q4

REPORT INFORMATION
  Report Type: 
  Country: None (occurrence: None)
  Receive Date: 20101221
  Receipt Date: 20101210
  Transmission Date: 20110411
  Serious: Yes (Other)
  Sender: FDA-Public Use
  Company Number: DE-AMGEN-DEUSP2010009755

PATIENT

DRUGS (2)
  1. ENBREL FERTIGSPRITZE [Suspect]
     Indication: PSORIASIS
     Dosage: 50 MG, 2X/WEEK
     Dates: start: 20090708
  2. ENBREL FERTIGSPRITZE [Suspect]

REACTIONS (3)
  - ABDOMINAL PAIN UPPER [None]
  - DEPRESSION [None]
  - WEIGHT DECREASED [None]
